FAERS Safety Report 15153734 (Version 5)
Quarter: 2020Q1

REPORT INFORMATION
  Report Type: Spontaneous
  Country: US (occurrence: US)
  Receive Date: 20180717
  Receipt Date: 20200327
  Transmission Date: 20200409
  Serious: Yes (Death, Disabling, Other)
  Sender: FDA-Public Use
  Company Number: US-SA-2018SA189653

PATIENT
  Age: 51 Year
  Sex: Female

DRUGS (14)
  1. ENSURE [NUTRIENTS NOS] [Concomitant]
     Dosage: 1 EA, TID
     Route: 048
  2. AUBAGIO [Suspect]
     Active Substance: TERIFLUNOMIDE
     Indication: RELAPSING-REMITTING MULTIPLE SCLEROSIS
     Dosage: 14 MG, QD
     Route: 048
     Dates: start: 20180612
  3. FLONASE [Concomitant]
     Active Substance: FLUTICASONE PROPIONATE
     Dosage: UNK UNK, QD
     Route: 045
  4. MULTI VITAMINS + MINERALS [Concomitant]
     Active Substance: MINERALS\VITAMINS
     Dosage: 1 DF, QD
     Route: 048
  5. CYMBALTA [Concomitant]
     Active Substance: DULOXETINE HYDROCHLORIDE
     Dosage: 1 DF, QD
     Route: 048
  6. HYDRALAZINE [Concomitant]
     Active Substance: HYDRALAZINE HYDROCHLORIDE
     Dosage: 1 DF, BID
     Route: 048
  7. BENICAR [Concomitant]
     Active Substance: OLMESARTAN MEDOXOMIL
     Dosage: QD
     Route: 048
  8. DOCUSATE SODIUM. [Concomitant]
     Active Substance: DOCUSATE SODIUM
     Dosage: 1 DF, BID
     Route: 048
  9. METOPROLOL SUCCINATE. [Concomitant]
     Active Substance: METOPROLOL SUCCINATE
     Dosage: 1.5 DF, BID
     Route: 048
  10. ACETAMINOPHEN. [Concomitant]
     Active Substance: ACETAMINOPHEN
     Dosage: 650 MG, PRN
     Route: 048
  11. DULCOLAX (BISACODYL) [Concomitant]
     Active Substance: BISACODYL
     Dosage: 10 MG, PRN
     Route: 054
  12. POLYETHYLENE GLYCOL 3350. [Concomitant]
     Active Substance: POLYETHYLENE GLYCOL 3350
     Dosage: UNK UNK, QD
     Route: 048
  13. PROLIA [Concomitant]
     Active Substance: DENOSUMAB
     Route: 042
  14. MUCINEX [Concomitant]
     Active Substance: GUAIFENESIN
     Dosage: 1 DF, BID
     Route: 048

REACTIONS (31)
  - Multiple sclerosis [Unknown]
  - Mental status changes [Unknown]
  - Hemiparesis [Unknown]
  - Anal incontinence [Unknown]
  - Lethargy [Unknown]
  - Asthenia [Unknown]
  - Confusional state [Unknown]
  - Urinary incontinence [Unknown]
  - Cognitive disorder [Unknown]
  - Neuralgia [Unknown]
  - Depression [Unknown]
  - Dysphagia [Unknown]
  - Muscle contracture [Unknown]
  - Tachycardia [Unknown]
  - Multiple sclerosis [Unknown]
  - Fatigue [Unknown]
  - Neurogenic bowel [Unknown]
  - Pain [Unknown]
  - Muscle spasticity [Unknown]
  - Muscle spasms [Unknown]
  - Dysarthria [Unknown]
  - Dizziness postural [Unknown]
  - Torticollis [Unknown]
  - Musculoskeletal disorder [Unknown]
  - Urinary tract infection [Unknown]
  - Pain [Not Recovered/Not Resolved]
  - Death [Fatal]
  - Neurogenic bladder [Unknown]
  - Paraplegia [Unknown]
  - Musculoskeletal pain [Unknown]
  - Demyelination [Unknown]

NARRATIVE: CASE EVENT DATE: 20180621
